FAERS Safety Report 19001486 (Version 3)
Quarter: 2021Q2

REPORT INFORMATION
  Report Type: Spontaneous
  Country: US (occurrence: US)
  Receive Date: 20210312
  Receipt Date: 20210504
  Transmission Date: 20210717
  Serious: No
  Sender: FDA-Public Use
  Company Number: US-FARMAPROD-202101-0003

PATIENT
  Age: 33 Year
  Sex: Female

DRUGS (11)
  1. ALBUTEROL SULFATE. [Concomitant]
     Active Substance: ALBUTEROL SULFATE
  2. COBALAMIN [Concomitant]
     Active Substance: COBALAMIN
  3. LINSEED OIL [Concomitant]
     Active Substance: HERBALS\LINSEED OIL
  4. LUMIFY [Concomitant]
     Active Substance: BRIMONIDINE TARTRATE
  5. OXERVATE [Suspect]
     Active Substance: CENEGERMIN-BKBJ
     Indication: NEUROTROPHIC KERATOPATHY
     Route: 047
     Dates: start: 20201228
  6. ALPHA LIPOIC ACID [Concomitant]
     Active Substance: .ALPHA.-LIPOIC ACID
  7. VITAMIN D2 [Concomitant]
     Active Substance: ERGOCALCIFEROL
  8. DOXYCYCLINE HYCLATE. [Concomitant]
     Active Substance: DOXYCYCLINE HYCLATE
  9. REGENER [Concomitant]
  10. OXERVATE [Suspect]
     Active Substance: CENEGERMIN-BKBJ
     Indication: HYPOAESTHESIA EYE
  11. FISH OIL [Concomitant]
     Active Substance: FISH OIL

REACTIONS (2)
  - Eye irritation [Unknown]
  - Oropharyngeal pain [Unknown]

NARRATIVE: CASE EVENT DATE: 20201231
